FAERS Safety Report 22211350 (Version 1)
Quarter: 2023Q2

REPORT INFORMATION
  Report Type: Spontaneous
  Country: US (occurrence: None)
  Receive Date: 20230414
  Receipt Date: 20230414
  Transmission Date: 20230721
  Serious: No
  Sender: FDA-Public Use
  Company Number: 2023A048555

PATIENT
  Age: 42 Year
  Sex: Female
  Weight: 82.6 kg

DRUGS (1)
  1. FASENRA [Suspect]
     Active Substance: BENRALIZUMAB
     Indication: Asthma
     Dosage: 30.0MG UNKNOWN
     Route: 030
     Dates: start: 20190910

REACTIONS (3)
  - Lymphadenopathy [Unknown]
  - COVID-19 [Unknown]
  - Incorrect route of product administration [Unknown]
